FAERS Safety Report 14996368 (Version 3)
Quarter: 2019Q1

REPORT INFORMATION
  Report Type: Spontaneous
  Country: FR (occurrence: FR)
  Receive Date: 20180611
  Receipt Date: 20190130
  Transmission Date: 20190417
  Serious: Yes (Hospitalization)
  Sender: FDA-Public Use
  Company Number: FR-PFIZER INC-2018233007

PATIENT
  Age: 27 Year
  Sex: Female

DRUGS (8)
  1. GLUCIDION [Concomitant]
     Active Substance: GLUCOSE, LIQUID\POTASSIUM CHLORIDE\SODIUM CHLORIDE
     Dosage: 3 DF, 1X/DAY
     Route: 042
     Dates: start: 20180320, end: 20180326
  2. PROPRANOLOL [Concomitant]
     Active Substance: PROPRANOLOL HYDROCHLORIDE
     Dosage: 40 MG, QD
     Route: 048
     Dates: start: 20180322
  3. BECILAN [Concomitant]
     Active Substance: PYRIDOXINE
     Dosage: 1 DF, 1X/DAY
     Route: 042
     Dates: start: 20180320, end: 20180327
  4. BEVITINE [Concomitant]
     Active Substance: THIAMINE HYDROCHLORIDE
     Dosage: 100 MG/2 ML, 1 DF QD
     Route: 042
     Dates: start: 20180320, end: 20180327
  5. HYDROCORTISONE. [Suspect]
     Active Substance: HYDROCORTISONE
     Indication: HYPEREMESIS GRAVIDARUM
     Dosage: 300 MG, QD
     Route: 042
     Dates: start: 20180320, end: 20180326
  6. PRIMPERAN [Concomitant]
     Active Substance: METOCLOPRAMIDE HYDROCHLORIDE
     Dosage: 30 MG (3 DF), 1X/DAY
     Route: 048
     Dates: start: 20180320, end: 20180327
  7. LOVENOX [Concomitant]
     Active Substance: ENOXAPARIN SODIUM
     Dosage: 1 DF, 1X/DAY
     Route: 058
     Dates: start: 20180324
  8. PANTOPRAZOLE [Suspect]
     Active Substance: PANTOPRAZOLE
     Indication: HYPEREMESIS GRAVIDARUM
     Dosage: 40 MG, QD
     Route: 042
     Dates: start: 20180320, end: 20180327

REACTIONS (1)
  - Hypokalaemia [Recovered/Resolved]

NARRATIVE: CASE EVENT DATE: 20180326
